FAERS Safety Report 4309777-7 (Version None)
Quarter: 2004Q1

REPORT INFORMATION
  Report Type: 
  Country: None (occurrence: None)
  Receive Date: 20040301
  Receipt Date: 20030127
  Transmission Date: 20041129
  Serious: Yes (Hospitalization)
  Sender: FDA-Public Use
  Company Number: US_021290945

PATIENT
  Age: 70 Year
  Sex: Male

DRUGS (6)
  1. PERMAX [Suspect]
     Indication: PARKINSON'S DISEASE
     Dosage: 50 UG/DAY
     Dates: start: 20001127, end: 20001217
  2. MENESIT [Concomitant]
  3. AMLODIPINE BESYLATE [Concomitant]
  4. DIGOXIN [Concomitant]
  5. HALCION [Concomitant]
  6. DIAZEPAM [Concomitant]

REACTIONS (1)
  - PLEURAL EFFUSION [None]
